FAERS Safety Report 5199782-3 (Version None)
Quarter: 2007Q1

REPORT INFORMATION
  Report Type: 
  Country: None (occurrence: None)
  Receive Date: 20070105
  Receipt Date: 20060828
  Transmission Date: 20070707
  Serious: No
  Sender: FDA-Public Use
  Company Number: 006929

PATIENT
  Age: 74 Year
  Sex: Male

DRUGS (3)
  1. TAGAMET [Suspect]
     Indication: DRUG USE FOR UNKNOWN INDICATION
     Dosage: 400MG PER DAY
     Route: 065
     Dates: end: 20060120
  2. WARFARIN SODIUM [Suspect]
     Indication: ATRIAL FIBRILLATION
     Route: 065
     Dates: start: 20030101
  3. COUMADIN [Suspect]
     Indication: ATRIAL FIBRILLATION
     Route: 065
     Dates: start: 20030101

REACTIONS (6)
  - ABDOMINAL PAIN UPPER [None]
  - DIARRHOEA [None]
  - DRUG INTERACTION [None]
  - ERYTHEMA [None]
  - FAECES DISCOLOURED [None]
  - PRURITUS [None]
